FAERS Safety Report 9351837 (Version 1)
Quarter: 2013Q2

REPORT INFORMATION
  Report Type: Spontaneous
  Country: SI (occurrence: None)
  Receive Date: 20130612
  Receipt Date: 20130612
  Transmission Date: 20140414
  Serious: Yes (Other)
  Sender: FDA-Public Use
  Company Number: FK201301960

PATIENT
  Age: 66 Year
  Sex: Female

DRUGS (6)
  1. PACLITAXEL [Suspect]
     Indication: OVARIAN CANCER
     Route: 042
     Dates: start: 20130510, end: 20130510
  2. RANITIDINE (RANITIDINE) [Concomitant]
  3. GRANISETRON (GRANISETRON) [Concomitant]
  4. ENAP (ENALAPRIL) [Concomitant]
  5. PROPRANOLOL (PROPRANOLOL) [Concomitant]
  6. PRIMIDONE (PRIMIDONE) [Concomitant]

REACTIONS (3)
  - Sinus bradycardia [None]
  - Abdominal pain [None]
  - Hyperhidrosis [None]
